FAERS Safety Report 9542706 (Version 2)
Quarter: 2013Q3

REPORT INFORMATION
  Report Type: Spontaneous
  Country: US (occurrence: US)
  Receive Date: 20130923
  Receipt Date: 20130923
  Transmission Date: 20140515
  Serious: Yes (Other)
  Sender: FDA-Public Use
  Company Number: US-NAPPMUNDI-USA-2009-0038240

PATIENT
  Age: 26 Year
  Sex: Male

DRUGS (2)
  1. HYDROMORPHONE HCL (SIMILAR TO NDA 21-044) [Suspect]
     Indication: DRUG ABUSE
  2. HEROIN [Suspect]
     Indication: DRUG ABUSE

REACTIONS (1)
  - Substance abuse [Unknown]
